FAERS Safety Report 6313111-0 (Version None)
Quarter: 2009Q3

REPORT INFORMATION
  Report Type: 
  Country: None (occurrence: None)
  Receive Date: 20090818
  Receipt Date: 20090807
  Transmission Date: 20100115
  Serious: Yes (Hospitalization)
  Sender: FDA-Public Use
  Company Number: TW-PFIZER INC-2009247812

PATIENT
  Age: 48 Year

DRUGS (16)
  1. SUNITINIB MALATE [Suspect]
     Indication: HEPATIC NEOPLASM MALIGNANT
     Dosage: 25 MG, 1X/DAY
     Route: 048
     Dates: start: 20090109, end: 20090727
  2. SILYMARIN [Concomitant]
     Indication: BLOOD AMYLASE INCREASED
     Dosage: 150 MG, 3X/DAY
     Dates: start: 20090617, end: 20090728
  3. URSODEOXYCHOLIC ACID [Concomitant]
     Indication: HYPERBILIRUBINAEMIA
     Dosage: 100 MG, 3X/DAY
     Dates: start: 20090617, end: 20090728
  4. PANTOPRAZOLE [Concomitant]
     Indication: GASTRITIS HAEMORRHAGIC
     Dosage: 40 MG, 1X/DAY
     Dates: start: 20090620, end: 20090728
  5. SENNOSIDE A+B CALCIUM [Concomitant]
     Indication: CONSTIPATION
     Dosage: 12 MG, UNK
     Dates: start: 20090621, end: 20090728
  6. ULTRACET [Concomitant]
     Indication: ABDOMINAL PAIN
     Dosage: 1 TAB EVERY 6 HOURS
     Dates: start: 20090109, end: 20090721
  7. PROCHLORPERAZINE [Concomitant]
     Indication: NAUSEA
     Dosage: 5 MG, 3X/DAY
     Dates: start: 20090622, end: 20090728
  8. PROCHLORPERAZINE [Concomitant]
     Indication: VOMITING
  9. LEVOTHYROXINE SODIUM [Concomitant]
     Indication: HYPOTHYROIDISM
     Dosage: 0.1 MG, 1X/DAY
     Dates: start: 20090213
  10. ENALAPRIL [Concomitant]
     Indication: HYPERTENSION
     Dosage: 0.1 MG, 1X/DAY
     Dates: start: 20090220
  11. FERROUS GLUCONATE [Concomitant]
     Indication: ANAEMIA
     Dosage: 1 TAB DAILY
     Dates: start: 20090625, end: 20090728
  12. MEPERIDINE HYDROCHLORIDE [Concomitant]
     Indication: ABDOMINAL PAIN
     Dosage: 50 MG, UNK
     Dates: start: 20090719, end: 20090719
  13. MEPERIDINE HYDROCHLORIDE [Concomitant]
     Dosage: 50 MG, FOUR TIMES DAILY
     Dates: start: 20090720, end: 20090721
  14. FLOPROPIONE [Concomitant]
     Indication: CHOLELITHIASIS
     Dosage: 40 MG, 3X/DAY
     Dates: start: 20090721, end: 20090724
  15. FENTANYL [Concomitant]
     Indication: ABDOMINAL PAIN
     Dosage: 25 MG, 3X/DAY
     Route: 062
     Dates: start: 20090721, end: 20090727
  16. SODIUM CHLORIDE [Concomitant]
     Indication: NUTRITIONAL SUPPORT
     Dosage: 100 ML, 80CC HOURS
     Dates: start: 20090719, end: 20090719

REACTIONS (2)
  - CHOLANGITIS [None]
  - PANCREATITIS ACUTE [None]
